FAERS Safety Report 15675378 (Version 1)
Quarter: 2018Q4

REPORT INFORMATION
  Report Type: Spontaneous
  Country: US (occurrence: US)
  Receive Date: 20181129
  Receipt Date: 20181129
  Transmission Date: 20190205
  Serious: Yes (Other)
  Sender: FDA-Public Use
  Company Number: None

PATIENT
  Age: 69 Year
  Sex: Male
  Weight: 105.75 kg

DRUGS (22)
  1. ALPRAZOLAM. [Concomitant]
     Active Substance: ALPRAZOLAM
  2. METOPROLOL SUCCINATE. [Concomitant]
     Active Substance: METOPROLOL SUCCINATE
  3. SAVELLA [Concomitant]
     Active Substance: MILNACIPRAN HYDROCHLORIDE
  4. TIZANIDINE. [Concomitant]
     Active Substance: TIZANIDINE
  5. LEVOTHYROXINE. [Concomitant]
     Active Substance: LEVOTHYROXINE
  6. OXYCONTIN [Concomitant]
     Active Substance: OXYCODONE HYDROCHLORIDE
  7. ASPIRIN. [Concomitant]
     Active Substance: ASPIRIN
  8. AIMOVIG [Suspect]
     Active Substance: ERENUMAB-AOOE
     Indication: MIGRAINE
     Dosage: ?          QUANTITY:70 INJECTION(S);OTHER FREQUENCY:ONCE PER MONTH INJ;?
     Route: 058
     Dates: start: 20180501, end: 20181101
  9. COMBIGAN [Concomitant]
     Active Substance: BRIMONIDINE TARTRATE\TIMOLOL MALEATE
  10. ACETAMINOPHEN. [Concomitant]
     Active Substance: ACETAMINOPHEN
  11. ROSUVASTATIN CALCIUM. [Concomitant]
     Active Substance: ROSUVASTATIN CALCIUM
  12. BREO ELLIPTA [Concomitant]
     Active Substance: FLUTICASONE FUROATE\VILANTEROL TRIFENATATE
  13. ELLIPTA [Concomitant]
  14. MAGNESIUM [Concomitant]
     Active Substance: MAGNESIUM
  15. FINASTERIDE. [Concomitant]
     Active Substance: FINASTERIDE
  16. PANTOPRAZOLE [Concomitant]
     Active Substance: PANTOPRAZOLE
  17. LYRICA [Concomitant]
     Active Substance: PREGABALIN
  18. AMITIZA [Concomitant]
     Active Substance: LUBIPROSTONE
  19. ESZOPICLONE. [Concomitant]
     Active Substance: ESZOPICLONE
  20. TAMSULOSIN [Concomitant]
     Active Substance: TAMSULOSIN
  21. LOSARTAN. [Concomitant]
     Active Substance: LOSARTAN
  22. VITAMIN B12 [Concomitant]
     Active Substance: CYANOCOBALAMIN

REACTIONS (2)
  - Renal disorder [None]
  - Constipation [None]

NARRATIVE: CASE EVENT DATE: 20180815
